FAERS Safety Report 9522763 (Version 1)
Quarter: 2013Q3

REPORT INFORMATION
  Report Type: Spontaneous
  Country: DE (occurrence: None)
  Receive Date: 20130829
  Receipt Date: 20130829
  Transmission Date: 20140515
  Serious: Yes (Other)
  Sender: FDA-Public Use
  Company Number: 2013037700

PATIENT
  Age: 11 Year
  Sex: Male

DRUGS (4)
  1. IVIG (IMMUNE GLOBULIN INTRAVENOUS (HUMAN) 10% LIQUID) [Suspect]
     Indication: TRANSPLANT REJECTION
  2. CORTICOSTEROIDS (CORTICOSTEROIDS) [Concomitant]
  3. RITUXIMAB (RITUXIMAB) [Concomitant]
  4. TACROLIMUS (TACROLIMUS) [Concomitant]

REACTIONS (4)
  - Transplant rejection [None]
  - Drug ineffective for unapproved indication [None]
  - Renal failure acute [None]
  - Urinary bladder haemorrhage [None]
